FAERS Safety Report 8940926 (Version 1)
Quarter: 2012Q4

REPORT INFORMATION
  Report Type: 
  Country: ES (occurrence: ES)
  Receive Date: 20121203
  Receipt Date: 20121203
  Transmission Date: 20130627
  Serious: Yes (Life-Threatening, Hospitalization)
  Sender: FDA-Public Use
  Company Number: ES-B.I. PHARMACEUTICALS,INC./RIDGEFIELD-2012-ES-00473ES

PATIENT
  Age: 71 Year
  Sex: Male

DRUGS (14)
  1. PRADAXA [Suspect]
     Indication: ATRIAL FIBRILLATION
     Dosage: 300 mg
     Route: 048
     Dates: start: 20120302, end: 20120305
  2. SINTROM [Suspect]
     Indication: ATRIAL FIBRILLATION
     Dosage: 4 mg
     Route: 048
     Dates: end: 20120301
  3. DIGOSIN [Concomitant]
     Indication: ATRIAL FIBRILLATION
     Route: 048
  4. CARBAMAZEPIN [Concomitant]
     Indication: SYSTEMIC MASTOCYTOSIS
     Dosage: 400 mg
     Route: 048
     Dates: start: 201112
  5. ALDACTONE [Concomitant]
     Indication: CARDIAC FAILURE
     Dosage: 50 mg
     Route: 048
     Dates: start: 201112
  6. ANAGASTRA [Concomitant]
     Indication: PROPHYLAXIS
     Dosage: 20 mg
     Route: 048
     Dates: start: 2008, end: 20120305
  7. PARACETAMOL [Concomitant]
  8. SPIRIVA [Concomitant]
  9. IDEOS [Concomitant]
  10. HYDREA [Concomitant]
  11. ALOPURINOL [Concomitant]
  12. ATARAX [Concomitant]
  13. BISOPROLOL [Concomitant]
  14. SEGURIL [Concomitant]

REACTIONS (2)
  - Lower gastrointestinal haemorrhage [Recovered/Resolved]
  - Drug interaction [Recovered/Resolved]
